FAERS Safety Report 14372480 (Version 4)
Quarter: 2018Q1

REPORT INFORMATION
  Report Type: Report from Study
  Country: CL (occurrence: CL)
  Receive Date: 20180110
  Receipt Date: 20180125
  Transmission Date: 20180509
  Serious: Yes (Hospitalization, Other)
  Sender: FDA-Public Use
  Company Number: CL-ACTELION-A-NJ2018-165583

PATIENT
  Age: 44 Year
  Sex: Female

DRUGS (1)
  1. VENTAVIS [Suspect]
     Active Substance: ILOPROST
     Indication: PULMONARY HYPERTENSION
     Dosage: 1 DF, 6ID
     Route: 055
     Dates: start: 20140523

REACTIONS (10)
  - General physical health deterioration [Not Recovered/Not Resolved]
  - Hypotension [Unknown]
  - Underdose [Unknown]
  - Angina unstable [Recovered/Resolved]
  - Fatigue [Not Recovered/Not Resolved]
  - Condition aggravated [Unknown]
  - Syncope [Recovering/Resolving]
  - Fall [Unknown]
  - Chest pain [Recovering/Resolving]
  - Organ failure [Unknown]

NARRATIVE: CASE EVENT DATE: 201712
